FAERS Safety Report 10974677 (Version 1)
Quarter: 2015Q1

REPORT INFORMATION
  Report Type: Spontaneous
  Country: US (occurrence: None)
  Receive Date: 20150226
  Receipt Date: 20150226
  Transmission Date: 20150721
  Serious: Yes (Hospitalization)
  Sender: FDA-Public Use
  Company Number: TPA2009A01280

PATIENT
  Age: 80 Year
  Sex: Male
  Weight: 68.95 kg

DRUGS (8)
  1. ULORIC [Suspect]
     Active Substance: FEBUXOSTAT
     Indication: PROPHYLAXIS
     Route: 048
     Dates: start: 20090322, end: 20090429
  2. ULORIC [Suspect]
     Active Substance: FEBUXOSTAT
     Indication: GOUTY ARTHRITIS
     Route: 048
     Dates: start: 20090322, end: 20090429
  3. PREDNISONE. [Concomitant]
     Active Substance: PREDNISONE
  4. ATENOLOL. [Concomitant]
     Active Substance: ATENOLOL
  5. HYDREA (HYDROXYCARABAMIDE) [Concomitant]
  6. LASIX [Concomitant]
     Active Substance: FUROSEMIDE
  7. ULORIC [Suspect]
     Active Substance: FEBUXOSTAT
     Indication: GOUTY TOPHUS
     Route: 048
     Dates: start: 20090322, end: 20090429
  8. LEVOXYL (LEVOTHYROXINE SODIUM) [Concomitant]

REACTIONS (3)
  - Cerebrovascular accident [None]
  - Liver function test abnormal [None]
  - Atrial fibrillation [None]

NARRATIVE: CASE EVENT DATE: 20090426
